FAERS Safety Report 14038430 (Version 1)
Quarter: 2017Q4

REPORT INFORMATION
  Report Type: Spontaneous
  Country: US (occurrence: US)
  Receive Date: 20171004
  Receipt Date: 20171004
  Transmission Date: 20180321
  Serious: No
  Sender: FDA-Public Use
  Company Number: US-ASTRAZENECA-2017SE99864

PATIENT
  Age: 29132 Day
  Sex: Female

DRUGS (1)
  1. SEROQUEL [Suspect]
     Active Substance: QUETIAPINE FUMARATE
     Indication: PRODUCT USED FOR UNKNOWN INDICATION
     Dosage: 0.5 TABLET, UNK
     Route: 048

REACTIONS (7)
  - Crying [Unknown]
  - Delusion [Unknown]
  - Product use issue [Unknown]
  - Mood altered [Unknown]
  - Confusional state [Unknown]
  - Treatment noncompliance [Unknown]
  - Hallucination [Unknown]

NARRATIVE: CASE EVENT DATE: 20170813
